FAERS Safety Report 25076301 (Version 2)
Quarter: 2025Q2

REPORT INFORMATION
  Report Type: Spontaneous
  Country: FR (occurrence: FR)
  Receive Date: 20250313
  Receipt Date: 20250425
  Transmission Date: 20250717
  Serious: Yes (Life-Threatening)
  Sender: TAKEDA
  Company Number: None

PATIENT
  Age: 48 Year
  Sex: Female
  Weight: 61 kg

DRUGS (10)
  1. ENTYVIO [Suspect]
     Active Substance: VEDOLIZUMAB
     Indication: Colitis
     Dates: start: 20241221, end: 20250203
  2. PANTOPRAZOLE [Suspect]
     Active Substance: PANTOPRAZOLE
     Indication: Prophylaxis against gastrointestinal ulcer
     Dosage: 40 MILLIGRAM, QD
     Dates: start: 20241227
  3. ACETAMINOPHEN [Suspect]
     Active Substance: ACETAMINOPHEN
  4. METHYLPREDNISOLONE [Suspect]
     Active Substance: METHYLPREDNISOLONE
     Indication: Ovarian cancer
     Dosage: 20 MILLIGRAM, QD
     Dates: start: 20250121
  5. LEVOTHYROXINE [Suspect]
     Active Substance: LEVOTHYROXINE
     Indication: Hypothyroidism
     Dosage: 75 MICROGRAM, QD
     Dates: start: 20241227
  6. IMOVANE [Suspect]
     Active Substance: ZOPICLONE
     Indication: Insomnia
     Dosage: UNK UNK, QD
     Dates: start: 20241227
  7. INNOHEP [Suspect]
     Active Substance: TINZAPARIN SODIUM
     Indication: Thrombosis prophylaxis
  8. GABAPENTIN [Suspect]
     Active Substance: GABAPENTIN
     Indication: Pain prophylaxis
  9. CLOMIPRAMINE HYDROCHLORIDE [Suspect]
     Active Substance: CLOMIPRAMINE HYDROCHLORIDE
     Indication: Antidepressant therapy
     Dosage: 30 MILLIGRAM, QD
     Dates: start: 20250110
  10. METOCLOPRAMIDE [Suspect]
     Active Substance: METOCLOPRAMIDE
     Indication: Antiemetic supportive care
     Dosage: 15 MILLIGRAM, QD
     Dates: start: 20241227

REACTIONS (1)
  - Agranulocytosis [Not Recovered/Not Resolved]

NARRATIVE: CASE EVENT DATE: 20250210
